FAERS Safety Report 6018624-7 (Version None)
Quarter: 2008Q4

REPORT INFORMATION
  Report Type: 
  Country: None (occurrence: None)
  Receive Date: 20081223
  Receipt Date: 20081215
  Transmission Date: 20090506
  Serious: Yes (Other)
  Sender: FDA-Public Use
  Company Number: US-JNJCH-2008057515

PATIENT
  Age: 15 Year
  Sex: Male
  Weight: 78.5 kg

DRUGS (1)
  1. DRAMAMINE [Suspect]
     Indication: EUPHORIC MOOD
     Dosage: TEXT:6 TABLETS
     Route: 048

REACTIONS (3)
  - DELUSIONAL PERCEPTION [None]
  - DRUG ABUSE [None]
  - FALL [None]
